FAERS Safety Report 6558188-2 (Version None)
Quarter: 2010Q1

REPORT INFORMATION
  Report Type: 
  Country: None (occurrence: None)
  Receive Date: 20100126
  Receipt Date: 20100113
  Transmission Date: 20100710
  Serious: Yes (Death, Hospitalization)
  Sender: FDA-Public Use
  Company Number: 2010AC000061

PATIENT
  Age: 73 Year
  Sex: Male

DRUGS (30)
  1. DIGOXIN [Suspect]
     Indication: ATRIAL FIBRILLATION
     Dosage: 0.125 MG, QD, PO
     Route: 048
  2. DIGOXIN [Suspect]
     Indication: CARDIAC FAILURE CONGESTIVE
     Dosage: 0.125 MG, QD, PO
     Route: 048
  3. MIRAPEX [Concomitant]
  4. POTASSIUM [Concomitant]
  5. LASIX [Concomitant]
  6. SYNTHROID [Concomitant]
  7. PREDNISONE [Concomitant]
  8. PERCOCET [Concomitant]
  9. COUMADIN [Concomitant]
  10. ADVAIR DISKUS 100/50 [Concomitant]
  11. COMBIVENT [Concomitant]
  12. TYLENOL-500 [Concomitant]
  13. ALBUTEROL [Concomitant]
  14. DILTIAZEM HCL [Concomitant]
  15. ATROVENT [Concomitant]
  16. NASONEX [Concomitant]
  17. BACTRIM [Concomitant]
  18. PROTONIX [Concomitant]
  19. CARDIZEM [Concomitant]
  20. ASPIRIN [Concomitant]
  21. POTASSIUM CHLORIDE [Concomitant]
  22. CARAFATE [Concomitant]
  23. AVANDIA [Concomitant]
  24. LEVOTHYROXINE SODIUM [Concomitant]
  25. DIABETA [Concomitant]
  26. CAFERGOT [Concomitant]
  27. FLOMAX [Concomitant]
  28. GLYBURIDE [Concomitant]
  29. PROMETHAZINE [Concomitant]
  30. KLOR-CON [Concomitant]

REACTIONS (31)
  - ABDOMINAL HERNIA [None]
  - ABDOMINAL PAIN [None]
  - AGITATION [None]
  - ANAEMIA [None]
  - ANHEDONIA [None]
  - ANXIETY [None]
  - ARRHYTHMIA [None]
  - ATRIAL FIBRILLATION [None]
  - CARDIAC ARREST [None]
  - CARDIAC FAILURE CONGESTIVE [None]
  - CHRONIC OBSTRUCTIVE PULMONARY DISEASE [None]
  - CONDITION AGGRAVATED [None]
  - DIABETES MELLITUS [None]
  - DIARRHOEA [None]
  - DYSPHAGIA [None]
  - ECONOMIC PROBLEM [None]
  - FAILURE TO THRIVE [None]
  - GLUCOSE TOLERANCE IMPAIRED [None]
  - HAEMORRHAGE [None]
  - INJURY [None]
  - MALNUTRITION [None]
  - MYOCARDIAL ISCHAEMIA [None]
  - PAIN [None]
  - PULMONARY EMBOLISM [None]
  - RENAL FAILURE ACUTE [None]
  - RENAL FAILURE CHRONIC [None]
  - RESPIRATORY DISTRESS [None]
  - RESPIRATORY FAILURE [None]
  - STAPHYLOCOCCAL INFECTION [None]
  - THERAPEUTIC AGENT TOXICITY [None]
  - UNEVALUABLE EVENT [None]
